FAERS Safety Report 5479038-1 (Version None)
Quarter: 2007Q4

REPORT INFORMATION
  Report Type: 
  Country: None (occurrence: None)
  Receive Date: 20071006
  Receipt Date: 20070925
  Transmission Date: 20080405
  Serious: Yes (Other)
  Sender: FDA-Public Use
  Company Number: JP-PFIZER INC-2007081187

PATIENT
  Age: 74 Year
  Sex: Female

DRUGS (2)
  1. DIFLUCAN [Suspect]
     Indication: MENINGITIS CRYPTOCOCCAL
     Dosage: DAILY DOSE:400MG
     Route: 048
  2. VFEND [Concomitant]
     Route: 048
     Dates: start: 20070905, end: 20070907

REACTIONS (1)
  - EOSINOPHIL COUNT INCREASED [None]
